FAERS Safety Report 10420370 (Version 1)
Quarter: 2014Q3

REPORT INFORMATION
  Report Type: Spontaneous
  Country: US (occurrence: None)
  Receive Date: 20140701
  Receipt Date: 20140701
  Transmission Date: 20150326
  Serious: No
  Sender: FDA-Public Use
  Company Number: 1000064807

PATIENT
  Age: 80 Year
  Sex: Male

DRUGS (7)
  1. AMIODARONE(AMIODARONE)(AMIODARONE) [Concomitant]
  2. REMERON(MIRTAZAPINE)(MIRTAZAPINE) [Concomitant]
  3. CITRUCEL(METHYLCELLULOSE)(METHYLCELLULOSE) [Concomitant]
  4. NEURONTIN(GABAPENTIN)(GABAPENTIN) [Concomitant]
  5. LINZESS [Suspect]
     Active Substance: LINACLOTIDE
     Indication: CONSTIPATION
  6. ATENOLOL(ATENOLOL)(ATENOLOL) [Concomitant]
  7. SYNTHROID(LEVOTHYROXINE SODIUM)(LEVOTHYROXINE SODIUM) [Concomitant]

REACTIONS (1)
  - Tinnitus [None]
